FAERS Safety Report 8842177 (Version 1)
Quarter: 2012Q4

REPORT INFORMATION
  Report Type: 
  Country: US (occurrence: None)
  Receive Date: 20121015
  Receipt Date: 20121015
  Transmission Date: 20130627
  Serious: No
  Sender: FDA-Public Use
  Company Number: None

PATIENT
  Age: 16 Year
  Sex: Male
  Weight: 132.9 kg

DRUGS (2)
  1. SINGULAIR [Suspect]
     Route: 048
     Dates: start: 20120813, end: 20121012
  2. SINGULAIR [Suspect]
     Route: 048
     Dates: start: 20120813, end: 20121012

REACTIONS (1)
  - No adverse event [None]
